FAERS Safety Report 6082773-8 (Version None)
Quarter: 2009Q1

REPORT INFORMATION
  Report Type: 
  Country: None (occurrence: None)
  Receive Date: 20090218
  Receipt Date: 20090211
  Transmission Date: 20090719
  Serious: Yes (Life-Threatening)
  Sender: FDA-Public Use
  Company Number: GB-JNJFOC-20090202956

PATIENT
  Age: 44 Year
  Sex: Female

DRUGS (2)
  1. TOPAMAX [Suspect]
     Indication: MIGRAINE PROPHYLAXIS
     Route: 048
  2. PREDNISOLONE [Concomitant]
     Indication: ADDISON'S DISEASE

REACTIONS (1)
  - ADRENOCORTICAL INSUFFICIENCY ACUTE [None]
